FAERS Safety Report 15291941 (Version 1)
Quarter: 2018Q4

REPORT INFORMATION
  Report Type: Spontaneous
  Country: US (occurrence: US)
  Receive Date: 20180817
  Receipt Date: 20180817
  Transmission Date: 20190204
  Serious: No
  Sender: FDA-Public Use
  Company Number: US-CUTISPHARMA, INC.-2053905

PATIENT
  Age: 78 Year
  Sex: Female

DRUGS (2)
  1. FIRVANQ [Suspect]
     Active Substance: VANCOMYCIN HYDROCHLORIDE
     Indication: CLOSTRIDIUM DIFFICILE COLITIS
     Route: 048
     Dates: start: 20180610, end: 20180612
  2. AMOXIL [Concomitant]
     Active Substance: AMOXICILLIN

REACTIONS (4)
  - Diarrhoea [None]
  - Tongue discomfort [Recovered/Resolved]
  - Lip swelling [Recovered/Resolved]
  - Eating disorder [Recovered/Resolved]

NARRATIVE: CASE EVENT DATE: 20180610
